FAERS Safety Report 6692435-1 (Version None)
Quarter: 2010Q2

REPORT INFORMATION
  Report Type: 
  Country: None (occurrence: None)
  Receive Date: 20100419
  Receipt Date: 20100405
  Transmission Date: 20101027
  Serious: Yes (Other)
  Sender: FDA-Public Use
  Company Number: 009455

PATIENT
  Age: 62 Year
  Sex: Female

DRUGS (6)
  1. BUSULFEX [Suspect]
     Indication: STEM CELL TRANSPLANT
  2. FLUDARABINE PHOSPHATE [Concomitant]
  3. ANTI-THYMOCYTE GLOBULIN NOS [Concomitant]
  4. AZACITIDINE (AZACITIDINE) [Concomitant]
  5. CYTARABINE [Concomitant]
  6. FILGRASTIM (FILGRASTIM) [Concomitant]

REACTIONS (2)
  - DISEASE RECURRENCE [None]
  - MYELODYSPLASTIC SYNDROME [None]
